FAERS Safety Report 13708117 (Version 2)
Quarter: 2017Q3

REPORT INFORMATION
  Report Type: Spontaneous
  Country: US (occurrence: US)
  Receive Date: 20170630
  Receipt Date: 20170817
  Transmission Date: 20171127
  Serious: No
  Sender: FDA-Public Use
  Company Number: US-PFIZER INC-2017203665

PATIENT
  Age: 95 Year
  Sex: Female
  Weight: 54 kg

DRUGS (1)
  1. PHOSPHOLINE IODIDE [Suspect]
     Active Substance: ECHOTHIOPHATE IODIDE
     Indication: GLAUCOMA
     Dosage: 1 GTT, 2X/DAY(ONE DROP IN RIGHT EYE TWICE DAILY)
     Route: 047

REACTIONS (6)
  - Wrong technique in product usage process [Unknown]
  - Dry eye [Not Recovered/Not Resolved]
  - Product dropper issue [Unknown]
  - Eye pain [Not Recovered/Not Resolved]
  - Product packaging issue [Unknown]
  - Drug dose omission [Unknown]
